FAERS Safety Report 23756901 (Version 1)
Quarter: 2024Q2

REPORT INFORMATION
  Report Type: Spontaneous
  Country: CH (occurrence: CH)
  Receive Date: 20240418
  Receipt Date: 20240418
  Transmission Date: 20240715
  Serious: Yes (Hospitalization, Other)
  Sender: FDA-Public Use
  Company Number: None

PATIENT
  Age: 77 Year
  Sex: Male

DRUGS (3)
  1. KEYTRUDA [Suspect]
     Active Substance: PEMBROLIZUMAB
     Dosage: 200 MILLIGRAM
     Route: 051
     Dates: start: 20231114, end: 20231114
  2. CARBOPLATIN [Concomitant]
     Active Substance: CARBOPLATIN
     Dosage: 330 MILLIGRAM
     Route: 051
     Dates: start: 20231114, end: 20231114
  3. PACLITAXEL [Concomitant]
     Active Substance: PACLITAXEL
     Dosage: 200 MILLIGRAM
     Route: 051
     Dates: start: 20231114, end: 20231114

REACTIONS (1)
  - Diverticular perforation [Recovered/Resolved]

NARRATIVE: CASE EVENT DATE: 20231214
